FAERS Safety Report 7517885-2 (Version None)
Quarter: 2011Q2

REPORT INFORMATION
  Report Type: 
  Country: None (occurrence: None)
  Receive Date: 20110527
  Receipt Date: 20110527
  Transmission Date: 20111010
  Serious: Yes (Death)
  Sender: FDA-Public Use
  Company Number: None

PATIENT
  Age: 46 Year
  Sex: Male
  Weight: 54.7 kg

DRUGS (8)
  1. DECITABINE [Suspect]
     Indication: ACUTE MYELOID LEUKAEMIA
     Dosage: 33MG IV X5 DAYS
     Route: 042
     Dates: start: 20110502, end: 20110506
  2. DECITABINE [Suspect]
     Indication: ACUTE MYELOID LEUKAEMIA
     Dosage: 33MG IV X5 DAYS
     Route: 042
     Dates: start: 20110329, end: 20110402
  3. RE-INDUCTION CHEMO [Concomitant]
  4. RAPAMYCIN 1MG TABS/WYETH [Suspect]
     Indication: ACUTE MYELOID LEUKAEMIA
     Dosage: 3MG PO X 20 DAYS
     Route: 048
     Dates: start: 20110403, end: 20110422
  5. RAPAMYCIN 1MG TABS/WYETH [Suspect]
     Indication: ACUTE MYELOID LEUKAEMIA
     Dosage: 3MG PO X 20 DAYS
     Route: 048
     Dates: start: 20110507, end: 20110519
  6. INDUCTION CHEMO [Concomitant]
  7. CONSOLIDATION CHEMO [Concomitant]
  8. CHEMOTHERAPY [Concomitant]

REACTIONS (7)
  - HEART RATE INCREASED [None]
  - SOMNOLENCE [None]
  - ACUTE MYELOID LEUKAEMIA [None]
  - MALAISE [None]
  - NEOPLASM PROGRESSION [None]
  - ASTHENIA [None]
  - BACK PAIN [None]
